FAERS Safety Report 5387377-8 (Version None)
Quarter: 2007Q3

REPORT INFORMATION
  Report Type: 
  Country: None (occurrence: None)
  Receive Date: 20070711
  Receipt Date: 20070629
  Transmission Date: 20080115
  Serious: Yes (Other)
  Sender: FDA-Public Use
  Company Number: GXKR2007GB05593

PATIENT
  Age: 118 Month

DRUGS (3)
  1. DIAZEPAM [Suspect]
     Dosage: TRANSPLACENTAL
     Route: 064
  2. DIHYDROCODEINE (NGX)(DIHYDROCODEINE) UNKNOWN [Suspect]
     Dosage: TRANSPLACENTAL
     Route: 064
  3. ALCOHOL(ETHANOL) [Suspect]
     Dosage: TRANSPLACENTAL
     Route: 064

REACTIONS (6)
  - ABNORMAL BEHAVIOUR [None]
  - DEVELOPMENTAL DELAY [None]
  - DRUG EXPOSURE DURING PREGNANCY [None]
  - LEARNING DISABILITY [None]
  - NYSTAGMUS [None]
  - VISUAL DISTURBANCE [None]
